FAERS Safety Report 15647173 (Version 2)
Quarter: 2018Q4

REPORT INFORMATION
  Report Type: Report from Study
  Country: US (occurrence: US)
  Receive Date: 20181122
  Receipt Date: 20181127
  Transmission Date: 20190205
  Serious: Yes (Death, Other)
  Sender: FDA-Public Use
  Company Number: US-GILEAD-2018-0375908

PATIENT
  Age: 76 Year
  Sex: Female

DRUGS (9)
  1. COMBIVENT [Concomitant]
     Active Substance: ALBUTEROL SULFATE\IPRATROPIUM BROMIDE
  2. SALMON OIL [Concomitant]
     Active Substance: FISH OIL
  3. NIACIN. [Concomitant]
     Active Substance: NIACIN
  4. MAGNESIUM [Concomitant]
     Active Substance: MAGNESIUM
  5. ADCIRCA [Concomitant]
     Active Substance: TADALAFIL
  6. AMBRISENTAN [Suspect]
     Active Substance: AMBRISENTAN
     Indication: PULMONARY HYPERTENSION
     Dosage: 10 MG, QD
     Route: 065
     Dates: start: 20120517, end: 2018
  7. LEVOXYL [Concomitant]
     Active Substance: LEVOTHYROXINE SODIUM
  8. MYCOPHENOLATE [Concomitant]
     Active Substance: MYCOPHENOLIC ACID
  9. WARFARIN [Concomitant]
     Active Substance: WARFARIN

REACTIONS (1)
  - Death [Fatal]

NARRATIVE: CASE EVENT DATE: 2018
